FAERS Safety Report 4657756-2 (Version None)
Quarter: 2005Q2

REPORT INFORMATION
  Report Type: 
  Country: None (occurrence: None)
  Receive Date: 20050505
  Receipt Date: 20040621
  Transmission Date: 20051028
  Serious: Yes (Hospitalization)
  Sender: FDA-Public Use
  Company Number: US-2004-025245

PATIENT
  Age: 64 Year
  Sex: Male

DRUGS (2)
  1. REFLUDAN [Suspect]
     Indication: HEPARIN-INDUCED THROMBOCYTOPENIA
     Dosage: 6.2 ML, 1 DOSE BOLUS, INTRAVENOUS
     Route: 042
     Dates: start: 20040506, end: 20040506
  2. ROCEPHIN [Concomitant]

REACTIONS (4)
  - ANAPHYLACTIC REACTION [None]
  - CARDIO-RESPIRATORY ARREST [None]
  - GENERALISED ERYTHEMA [None]
  - HYPOTENSION [None]
